FAERS Safety Report 4854722-9 (Version None)
Quarter: 2005Q4

REPORT INFORMATION
  Report Type: 
  Country: None (occurrence: None)
  Receive Date: 20051215
  Receipt Date: 20051005
  Transmission Date: 20060501
  Serious: Yes (Life-Threatening, Hospitalization)
  Sender: FDA-Public Use
  Company Number: 420454

PATIENT
  Age: 72 Year
  Sex: Male
  Weight: 101.4 kg

DRUGS (8)
  1. COREG [Suspect]
     Indication: CARDIAC DISORDER
     Route: 048
     Dates: start: 20050805, end: 20050901
  2. FUROSEMIDE [Suspect]
  3. COUMADIN [Suspect]
  4. AMIODARONE HCL [Suspect]
     Dosage: 200MG TWICE PER DAY
  5. NORVASC [Suspect]
  6. LIPITOR [Suspect]
  7. LISINOPRIL [Suspect]
  8. POTASSIUM [Suspect]

REACTIONS (15)
  - ADVERSE EVENT [None]
  - ASTHENIA [None]
  - DEPRESSED LEVEL OF CONSCIOUSNESS [None]
  - DIZZINESS [None]
  - DRUG INTERACTION [None]
  - DYSPNOEA [None]
  - EXERCISE TOLERANCE DECREASED [None]
  - FOAMING AT MOUTH [None]
  - HEADACHE [None]
  - HEART RATE DECREASED [None]
  - HYPOTENSION [None]
  - LOSS OF CONSCIOUSNESS [None]
  - NAUSEA [None]
  - SYNCOPE [None]
  - VERTIGO [None]
